FAERS Safety Report 10168260 (Version 4)
Quarter: 2014Q2

REPORT INFORMATION
  Report Type: Report from Study
  Country: GB (occurrence: GB)
  Receive Date: 20140512
  Receipt Date: 20140609
  Transmission Date: 20141212
  Serious: Yes (Death)
  Sender: FDA-Public Use
  Company Number: GB-B.I. PHARMACEUTICALS,INC./RIDGEFIELD-2014-BI-20276II

PATIENT
  Age: 72 Year
  Sex: Male
  Weight: 90.7 kg

DRUGS (6)
  1. BIBW 2992 [Suspect]
     Indication: NON-SMALL CELL LUNG CANCER
     Dosage: 40 MG
     Route: 048
     Dates: start: 20140422, end: 201405
  2. WARFARIN [Concomitant]
     Indication: ATRIAL FIBRILLATION
     Route: 048
  3. BISOPROLOL FUMARATE [Concomitant]
     Indication: ATRIAL FIBRILLATION
     Dosage: 5 MG
     Route: 048
  4. FUROSEMIDE [Concomitant]
     Dosage: 40 MG
     Route: 048
  5. DIGOXIN [Concomitant]
     Indication: ATRIAL FIBRILLATION
     Dosage: 125 MCG
     Route: 048
  6. CO-CODAMOL [Concomitant]
     Indication: PAIN
     Dosage: DOSE PER APPLICATION: 30/500, 2 DOSE
     Route: 048

REACTIONS (1)
  - Renal failure acute [Fatal]
